FAERS Safety Report 6104199-0 (Version None)
Quarter: 2009Q1

REPORT INFORMATION
  Report Type: 
  Country: None (occurrence: None)
  Receive Date: 20090305
  Receipt Date: 20090227
  Transmission Date: 20090719
  Serious: Yes (Other)
  Sender: FDA-Public Use
  Company Number: CA-ASTRAZENECA-2009UW05469

PATIENT
  Sex: Female

DRUGS (1)
  1. ARIMIDEX [Suspect]
     Route: 048
     Dates: start: 20060101

REACTIONS (12)
  - ALOPECIA [None]
  - ARTHRITIS [None]
  - BREAST PAIN [None]
  - BREAST SWELLING [None]
  - BRONCHIECTASIS [None]
  - DRY EYE [None]
  - DRY SKIN [None]
  - FATIGUE [None]
  - MUSCLE SPASMS [None]
  - ONYCHOCLASIS [None]
  - THYROID DISORDER [None]
  - WEIGHT INCREASED [None]
